FAERS Safety Report 6926267-3 (Version None)
Quarter: 2010Q3

REPORT INFORMATION
  Report Type: 
  Country: None (occurrence: None)
  Receive Date: 20100811
  Receipt Date: 20100802
  Transmission Date: 20110219
  Serious: Yes (Hospitalization)
  Sender: FDA-Public Use
  Company Number: 2010SP041901

PATIENT
  Age: 92 Year
  Sex: Male

DRUGS (7)
  1. DESLORATADINE [Suspect]
     Indication: PRODUCT USED FOR UNKNOWN INDICATION
     Dosage: ; PO
     Route: 048
     Dates: start: 20071001
  2. XATRAL (ALFUZOSIN) [Suspect]
     Indication: PRODUCT USED FOR UNKNOWN INDICATION
     Dosage: 2.5 MG; PO
     Route: 048
     Dates: start: 20080301
  3. KARDEGIC (ACETYLSALICYLATE LYSINE) [Suspect]
     Indication: PRODUCT USED FOR UNKNOWN INDICATION
     Dosage: 75 MG;   PO
     Route: 048
     Dates: start: 20080501
  4. SPIRONOLACTONE [Suspect]
     Indication: PRODUCT USED FOR UNKNOWN INDICATION
     Dosage: 50 MG; PO
     Route: 048
     Dates: start: 20090101
  5. ESCITALOPRAM [Suspect]
     Indication: PRODUCT USED FOR UNKNOWN INDICATION
     Dosage: 10 MG;  ; PO
     Route: 048
     Dates: start: 20090601
  6. ATARAX [Suspect]
     Indication: PRODUCT USED FOR UNKNOWN INDICATION
     Dosage: 25 MG;  ; PO
     Route: 048
     Dates: start: 20090201
  7. PANTOPRAZOLE [Suspect]
     Indication: PRODUCT USED FOR UNKNOWN INDICATION
     Dosage: 20 MG; PO
     Route: 048
     Dates: start: 20100501

REACTIONS (3)
  - LICHENOID KERATOSIS [None]
  - PRURIGO [None]
  - TOXIC SKIN ERUPTION [None]
